FAERS Safety Report 8830478 (Version 1)
Quarter: 2012Q4

REPORT INFORMATION
  Report Type: 
  Country: GB (occurrence: GB)
  Receive Date: 20121009
  Receipt Date: 20121009
  Transmission Date: 20130627
  Serious: Yes (Congenital Anomaly)
  Sender: FDA-Public Use
  Company Number: GB-TEVA-361952ISR

PATIENT
  Age: 1 Hour
  Sex: Male
  Weight: 2.89 kg

DRUGS (2)
  1. VENLAFAXINE [Suspect]
     Indication: DEPRESSION
     Route: 064
     Dates: start: 20110823
  2. FOLIC ACID [Concomitant]

REACTIONS (2)
  - Syndactyly [Not Recovered/Not Resolved]
  - Hypospadias [Not Recovered/Not Resolved]
